FAERS Safety Report 4339488-3 (Version None)
Quarter: 2004Q2

REPORT INFORMATION
  Report Type: 
  Country: None (occurrence: None)
  Receive Date: 20040415
  Receipt Date: 20040301
  Transmission Date: 20050107
  Serious: Yes (Other)
  Sender: FDA-Public Use
  Company Number: US-ROCHE-360485

PATIENT
  Age: 47 Year
  Sex: Female
  Weight: 69.9 kg

DRUGS (1)
  1. ACCUTANE [Suspect]
     Indication: ACNE
     Route: 048
     Dates: start: 20020815, end: 20021215

REACTIONS (4)
  - ALANINE AMINOTRANSFERASE INCREASED [None]
  - APPENDICECTOMY [None]
  - ASPARTATE AMINOTRANSFERASE INCREASED [None]
  - LIVER FUNCTION TEST ABNORMAL [None]
